FAERS Safety Report 11328878 (Version 3)
Quarter: 2015Q3

REPORT INFORMATION
  Report Type: Spontaneous
  Country: JP (occurrence: JP)
  Receive Date: 20150801
  Receipt Date: 20150918
  Transmission Date: 20151125
  Serious: Yes (Death, Hospitalization, Other)
  Sender: FDA-Public Use
  Company Number: PHJP2015JP012320

PATIENT
  Age: 74 Year
  Sex: Male

DRUGS (2)
  1. PREDNISOLONE. [Concomitant]
     Active Substance: PREDNISOLONE
     Indication: INTERSTITIAL LUNG DISEASE
     Dosage: 10 MG, QD
     Route: 065
  2. NEORAL [Suspect]
     Active Substance: CYCLOSPORINE
     Indication: INTERSTITIAL LUNG DISEASE
     Dosage: 150 MG, QD
     Route: 048

REACTIONS (6)
  - Pyrexia [Fatal]
  - Bronchopulmonary aspergillosis [Fatal]
  - Hypoxia [Fatal]
  - Off label use [Unknown]
  - Condition aggravated [Unknown]
  - Dyspnoea exertional [Fatal]

NARRATIVE: CASE EVENT DATE: 2014
